FAERS Safety Report 11638710 (Version 2)
Quarter: 2016Q2

REPORT INFORMATION
  Report Type: Report from Study
  Country: BG (occurrence: BG)
  Receive Date: 20151016
  Receipt Date: 20160615
  Transmission Date: 20160815
  Serious: Yes (Hospitalization, Other)
  Sender: FDA-Public Use
  Company Number: BG-ASTRAZENECA-2015SE98222

PATIENT
  Age: 13449 Day
  Sex: Female

DRUGS (13)
  1. CAT-354 CODE NOT BROKEN [Suspect]
     Active Substance: TRALOKINUMAB
     Indication: ASTHMA
     Route: 058
     Dates: start: 20160411
  2. CAT-354 CODE NOT BROKEN [Suspect]
     Active Substance: TRALOKINUMAB
     Indication: ASTHMA
     Route: 058
     Dates: start: 20150928
  3. CAT-354 CODE NOT BROKEN [Suspect]
     Active Substance: TRALOKINUMAB
     Indication: ASTHMA
     Route: 058
     Dates: start: 20160509
  4. SYMBICORT [Suspect]
     Active Substance: BUDESONIDE\FORMOTEROL FUMARATE DIHYDRATE
     Indication: ASTHMA
     Dosage: TOTAL DAILY DOSE: 320/9 UG BID
     Route: 055
     Dates: end: 20151011
  5. CAT-354 CODE NOT BROKEN [Suspect]
     Active Substance: TRALOKINUMAB
     Indication: ASTHMA
     Route: 058
     Dates: start: 20151221
  6. CAT-354 CODE NOT BROKEN [Suspect]
     Active Substance: TRALOKINUMAB
     Indication: ASTHMA
     Route: 058
     Dates: start: 20160118
  7. CAT-354 CODE NOT BROKEN [Suspect]
     Active Substance: TRALOKINUMAB
     Indication: ASTHMA
     Route: 058
     Dates: start: 20151026
  8. CAT-354 CODE NOT BROKEN [Suspect]
     Active Substance: TRALOKINUMAB
     Indication: ASTHMA
     Route: 058
     Dates: start: 20151123
  9. VENTOLIN [Suspect]
     Active Substance: ALBUTEROL SULFATE
     Indication: ASTHMA
     Route: 055
  10. CAT-354 CODE NOT BROKEN [Suspect]
     Active Substance: TRALOKINUMAB
     Indication: ASTHMA
     Route: 058
     Dates: start: 20150831
  11. CAT-354 CODE NOT BROKEN [Suspect]
     Active Substance: TRALOKINUMAB
     Indication: ASTHMA
     Route: 058
     Dates: start: 20160316
  12. CAT-354 CODE NOT BROKEN [Suspect]
     Active Substance: TRALOKINUMAB
     Indication: ASTHMA
     Route: 058
     Dates: start: 20160215
  13. CAT-354 CODE NOT BROKEN [Suspect]
     Active Substance: TRALOKINUMAB
     Indication: ASTHMA
     Route: 058
     Dates: start: 20160606

REACTIONS (1)
  - Asthma [Recovered/Resolved]

NARRATIVE: CASE EVENT DATE: 20151007
